FAERS Safety Report 14651847 (Version 1)
Quarter: 2018Q1

REPORT INFORMATION
  Report Type: Spontaneous
  Country: US (occurrence: US)
  Receive Date: 20180317
  Receipt Date: 20180317
  Transmission Date: 20180509
  Serious: No
  Sender: FDA-Public Use
  Company Number: US-JNJFOC-20180301073

PATIENT
  Age: 43 Year
  Sex: Male
  Weight: 86.18 kg

DRUGS (3)
  1. MENS ROGAINE EXTRA STRENGTH [Suspect]
     Active Substance: MINOXIDIL
     Indication: ALOPECIA
     Dosage: 1/2 CAPFUL
     Route: 061
     Dates: start: 20180223
  2. XYZAL [Concomitant]
     Active Substance: LEVOCETIRIZINE DIHYDROCHLORIDE
     Indication: MULTIPLE ALLERGIES
     Route: 065
  3. MENS ROGAINE EXTRA STRENGTH [Suspect]
     Active Substance: MINOXIDIL
     Route: 061

REACTIONS (3)
  - Hair texture abnormal [Recovered/Resolved]
  - Product quality issue [Unknown]
  - Hair colour changes [Recovered/Resolved]

NARRATIVE: CASE EVENT DATE: 20180223
